FAERS Safety Report 6986234-0 (Version None)
Quarter: 2010Q3

REPORT INFORMATION
  Report Type: 
  Country: None (occurrence: None)
  Receive Date: 20100915
  Receipt Date: 20090615
  Transmission Date: 20110219
  Serious: No
  Sender: FDA-Public Use
  Company Number: US-WYE-H09767709

PATIENT
  Sex: Female
  Weight: 51.76 kg

DRUGS (7)
  1. PRISTIQ [Suspect]
     Indication: DEPRESSION
     Dosage: 50 MG TABLET, ^SHE CUT THE TABLET IN HALF^
     Route: 048
     Dates: start: 20090612, end: 20090612
  2. LORAZEPAM [Concomitant]
  3. LACTULOSE [Concomitant]
  4. NIFEDIPINE [Concomitant]
  5. PROPRANOLOL [Concomitant]
  6. LYRICA [Concomitant]
  7. CRESTOR [Concomitant]

REACTIONS (2)
  - INSOMNIA [None]
  - TREMOR [None]
